FAERS Safety Report 5994609-1 (Version None)
Quarter: 2008Q4

REPORT INFORMATION
  Report Type: 
  Country: None (occurrence: None)
  Receive Date: 20081212
  Receipt Date: 20080909
  Transmission Date: 20090506
  Serious: No
  Sender: FDA-Public Use
  Company Number: US-ABBOTT-08P-163-0475569-00

PATIENT
  Sex: Female
  Weight: 62.652 kg

DRUGS (10)
  1. HUMIRA [Suspect]
     Indication: RHEUMATOID ARTHRITIS
     Route: 058
     Dates: start: 20060101, end: 20080301
  2. HUMIRA [Suspect]
     Route: 058
     Dates: start: 20080301, end: 20080701
  3. HUMIRA [Suspect]
     Dates: start: 20080901
  4. PREDNISONE TAB [Concomitant]
     Indication: RHEUMATOID ARTHRITIS
     Route: 048
     Dates: start: 19960101
  5. ACETAMINOPHEN W/ CODEINE [Concomitant]
     Indication: RHEUMATOID ARTHRITIS
     Route: 048
     Dates: start: 20060101
  6. PHENOBARBITAL TAB [Concomitant]
     Indication: CONVULSION
     Dosage: ONE 32.4 MILLIGRAM TABLET IN THE AM AND TWO 32.4 MILLIGRAM TABLETS AT BEDTIME
     Route: 048
     Dates: start: 19960101
  7. LAMOTRIGINE [Concomitant]
     Indication: CONVULSION
     Dosage: 1/4 OF A 200 MILLIGRAM TABLET
     Route: 048
     Dates: start: 20040101
  8. TOPIRAMATE [Concomitant]
     Indication: CONVULSION
     Route: 048
     Dates: start: 20040101
  9. POTASSIUM CHLORIDE [Concomitant]
     Indication: BLOOD POTASSIUM DECREASED
     Route: 048
     Dates: start: 19970101
  10. DYAZIDE [Concomitant]
     Indication: BLOOD PRESSURE
     Route: 048
     Dates: start: 19960101

REACTIONS (5)
  - BACK INJURY [None]
  - CATARACT [None]
  - DRUG INEFFECTIVE [None]
  - FALL [None]
  - UNDERDOSE [None]
